FAERS Safety Report 4736253-X (Version None)
Quarter: 2005Q3

REPORT INFORMATION
  Report Type: 
  Country: None (occurrence: None)
  Receive Date: 20050805
  Receipt Date: 20050805
  Transmission Date: 20060218
  Serious: Yes (Hospitalization)
  Sender: FDA-Public Use
  Company Number: None

PATIENT
  Age: 58 Year
  Sex: Male
  Weight: 93 kg

DRUGS (2)
  1. HALOPERIDOL [Suspect]
     Indication: AGITATION
     Dosage: 5 MG IV Q 6 HRS PRN
     Route: 042
     Dates: start: 20050731
  2. HALOPERIDOL [Suspect]
     Indication: ALCOHOL WITHDRAWAL SYNDROME
     Dosage: 5 MG IV Q 6 HRS PRN
     Route: 042
     Dates: start: 20050731

REACTIONS (2)
  - PYREXIA [None]
  - RASH [None]
